FAERS Safety Report 15357660 (Version 1)
Quarter: 2018Q3

REPORT INFORMATION
  Report Type: Report from Study
  Country: US (occurrence: US)
  Receive Date: 20180906
  Receipt Date: 20180906
  Transmission Date: 20181010
  Serious: Yes (Death, Hospitalization, Other)
  Sender: FDA-Public Use
  Company Number: US-BRISTOL-MYERS SQUIBB COMPANY-BMS-2018-082706

PATIENT
  Age: 60 Year
  Sex: Male
  Weight: 77.1 kg

DRUGS (2)
  1. NIVOLUMAB [Suspect]
     Active Substance: NIVOLUMAB
     Indication: PROSTATE CANCER
     Dosage: 3 MG/KG, Q3WK
     Route: 042
     Dates: start: 20180702
  2. IPILIMUMAB [Suspect]
     Active Substance: IPILIMUMAB
     Indication: PROSTATE CANCER
     Dosage: 1 MG/KG, Q3WK
     Route: 042
     Dates: start: 20180702

REACTIONS (5)
  - Urosepsis [Unknown]
  - Malignant neoplasm progression [Fatal]
  - Urinary tract infection enterococcal [Unknown]
  - Acute kidney injury [Unknown]
  - Mental status changes [Unknown]

NARRATIVE: CASE EVENT DATE: 20180827
